FAERS Safety Report 17521256 (Version 3)
Quarter: 2020Q1

REPORT INFORMATION
  Report Type: Spontaneous
  Country: CN (occurrence: CN)
  Receive Date: 20200310
  Receipt Date: 20200312
  Transmission Date: 20200409
  Serious: Yes (Life-Threatening, Hospitalization, Other)
  Sender: FDA-Public Use
  Company Number: CN-PFIZER INC-2020100507

PATIENT
  Age: 57 Year
  Sex: Female

DRUGS (13)
  1. METHYLPREDNISOLONE. [Suspect]
     Active Substance: METHYLPREDNISOLONE
     Indication: GRAFT VERSUS HOST DISEASE IN GASTROINTESTINAL TRACT
     Dosage: UNK
  2. METHYLPREDNISOLONE. [Suspect]
     Active Substance: METHYLPREDNISOLONE
     Indication: GRAFT VERSUS HOST DISEASE IN SKIN
  3. METHOTREXATE. [Suspect]
     Active Substance: METHOTREXATE
     Dosage: 15 MG/KG, 1X/DAY (SHORT-TERM ON DAY +1)
     Dates: start: 2018
  4. CYCLOPHOSPHAMIDE. [Suspect]
     Active Substance: CYCLOPHOSPHAMIDE
     Indication: BONE MARROW CONDITIONING REGIMEN
     Dosage: UNK (DAYS -4 AND -3 1.8 G/M2)
     Dates: start: 2018
  5. MYCOPHENOLATE MOFETIL. [Suspect]
     Active Substance: MYCOPHENOLATE MOFETIL
     Indication: PROPHYLAXIS AGAINST GRAFT VERSUS HOST DISEASE
     Dosage: 1 G, 2X/DAY (FROM DAY -10 TO DAY +30, AND THEN GRADUALLY TAPERED OFF UNTIL DAY +60)
     Dates: start: 2018
  6. CYTARABINE. [Concomitant]
     Active Substance: CYTARABINE
     Indication: BONE MARROW CONDITIONING REGIMEN
     Dosage: UNK (DAYS -9 AND -8 4 G/M2)
     Dates: start: 2018
  7. BUSULFAN. [Concomitant]
     Active Substance: BUSULFAN
     Indication: BONE MARROW CONDITIONING REGIMEN
     Dosage: 4 MG/KG, 1X/DAY (DAYS -7 TO -5)
     Dates: start: 2018
  8. METHOTREXATE. [Suspect]
     Active Substance: METHOTREXATE
     Indication: PROPHYLAXIS AGAINST GRAFT VERSUS HOST DISEASE
     Dosage: 10 MG/KG, 1X/DAY (SHORT-TERM ON DAYS +3, +6 AND +11)
     Dates: start: 2018
  9. ANTITHYMOCYTE IMMUNOGLOBULIN [Suspect]
     Active Substance: THYMOCYTE IMMUNE GLOBULIN NOS
     Indication: PROPHYLAXIS AGAINST GRAFT VERSUS HOST DISEASE
     Dosage: 2.5 MG/KG, 1X/DAY (ON DAYS -5 AND -2)
     Dates: start: 2018
  10. TACROLIMUS. [Suspect]
     Active Substance: TACROLIMUS
     Indication: GRAFT VERSUS HOST DISEASE IN SKIN
     Dosage: 0.03 MG/KG, 1X/DAY
  11. CICLOSPORIN [Suspect]
     Active Substance: CYCLOSPORINE
     Indication: PROPHYLAXIS AGAINST GRAFT VERSUS HOST DISEASE
     Dosage: 3 MG/KG, 1X/DAY (CONTINUOUS INFUSION OVER 24 H FROM DAY -10)
     Dates: start: 2018
  12. SEMUSTINE [Concomitant]
     Active Substance: SEMUSTINE
     Indication: BONE MARROW CONDITIONING REGIMEN
     Dosage: 250 MG/M2, UNK (DAY -10)
     Dates: start: 2018
  13. TACROLIMUS. [Suspect]
     Active Substance: TACROLIMUS
     Indication: GRAFT VERSUS HOST DISEASE IN GASTROINTESTINAL TRACT

REACTIONS (2)
  - Encephalitis cytomegalovirus [Recovering/Resolving]
  - Cytomegalovirus viraemia [Recovering/Resolving]
